FAERS Safety Report 5514876-8 (Version None)
Quarter: 2007Q4

REPORT INFORMATION
  Report Type: 
  Country: None (occurrence: None)
  Receive Date: 20071113
  Receipt Date: 20060915
  Transmission Date: 20080405
  Serious: No
  Sender: FDA-Public Use
  Company Number: A0620329A

PATIENT

DRUGS (4)
  1. COREG [Suspect]
     Indication: HYPERTENSION
     Dosage: 6.25MG TWICE PER DAY
     Route: 048
     Dates: start: 20060701
  2. METFORMIN HCL [Concomitant]
  3. ANGIOTENSIN-CONVERTING ENZYME INHIBITOR (UNSPECIFIED) [Concomitant]
  4. ACTOS [Concomitant]

REACTIONS (1)
  - BLOOD CREATININE INCREASED [None]
